FAERS Safety Report 6332275-6 (Version None)
Quarter: 2009Q3

REPORT INFORMATION
  Report Type: 
  Country: None (occurrence: None)
  Receive Date: 20090828
  Receipt Date: 20090817
  Transmission Date: 20100115
  Serious: Yes (Death)
  Sender: FDA-Public Use
  Company Number: US-PFIZER INC-2009260161

PATIENT
  Sex: Male
  Weight: 87.98 kg

DRUGS (6)
  1. MORPHINE SULFATE [Suspect]
     Indication: DRUG ABUSE
     Dosage: UNK
     Route: 065
  2. XANAX [Suspect]
     Indication: DRUG ABUSE
     Dosage: UNK
     Route: 065
  3. OXYCONTIN [Suspect]
     Indication: DRUG ABUSE
     Dosage: UNK
     Route: 065
  4. ALCOHOL [Suspect]
     Indication: ALCOHOL USE
     Dosage: UNK
     Route: 065
  5. CODEINE [Suspect]
     Indication: DRUG ABUSE
     Dosage: UNK
     Route: 065
  6. DIPHENHYDRAMINE [Suspect]
     Indication: DRUG USE FOR UNKNOWN INDICATION
     Route: 065

REACTIONS (14)
  - ALCOHOL USE [None]
  - CARDIAC ARREST [None]
  - CARDIAC FAILURE CONGESTIVE [None]
  - DRUG ABUSE [None]
  - DRUG SCREEN POSITIVE [None]
  - DRUG TOXICITY [None]
  - MULTIPLE DRUG OVERDOSE [None]
  - PARTNER STRESS [None]
  - PERITONEAL HAEMORRHAGE [None]
  - PULMONARY CONGESTION [None]
  - PULMONARY OEDEMA [None]
  - RESPIRATORY TRACT HAEMORRHAGE [None]
  - SPLEEN CONGESTION [None]
  - SPLENOMEGALY [None]
